FAERS Safety Report 24267905 (Version 2)
Quarter: 2024Q3

REPORT INFORMATION
  Report Type: Report from Study
  Country: US (occurrence: US)
  Receive Date: 20240830
  Receipt Date: 20240913
  Transmission Date: 20241017
  Serious: Yes (Hospitalization, Other)
  Sender: BAYER
  Company Number: US-BAYER-2024A107573

PATIENT
  Age: 90 Year
  Sex: Male

DRUGS (14)
  1. NUBEQA [Suspect]
     Active Substance: DAROLUTAMIDE
     Indication: Prostate cancer
     Dosage: 600 MG, BID
     Route: 048
  2. NUBEQA [Suspect]
     Active Substance: DAROLUTAMIDE
     Indication: Oestrogen receptor assay positive
     Dosage: 600 MG, BID
     Route: 048
     Dates: end: 20240819
  3. CALCIUM [Concomitant]
     Active Substance: CALCIUM
     Dosage: 500 MG
  4. LUPRON DEPOT [Concomitant]
     Active Substance: LEUPROLIDE ACETATE
     Dosage: 22.5 MG
  5. AMBIEN [Concomitant]
     Active Substance: ZOLPIDEM TARTRATE
     Dosage: 10 MG
  6. ATORVASTATIN [Concomitant]
     Active Substance: ATORVASTATIN
     Dosage: 20 MG
  7. DILTIAZEM HYDROCHLORIDE [Concomitant]
     Active Substance: DILTIAZEM HYDROCHLORIDE
     Dosage: 240 MG
  8. LINZESS [Concomitant]
     Active Substance: LINACLOTIDE
     Dosage: 145 MCG
  9. LOSARTAN POTASSIUM [Concomitant]
     Active Substance: LOSARTAN POTASSIUM
     Dosage: 50 MG
  10. TAMOXIFEN CITRATE [Concomitant]
     Active Substance: TAMOXIFEN CITRATE
     Dosage: 10 MG
  11. TAMSULOSIN HYDROCHLORIDE [Concomitant]
     Active Substance: TAMSULOSIN HYDROCHLORIDE
     Dosage: 0.4 MG
  12. VERAPAMIL HCL [Concomitant]
     Active Substance: VERAPAMIL HYDROCHLORIDE
     Dosage: 120 MG
  13. IMODIUM A-D [Concomitant]
     Active Substance: LOPERAMIDE HYDROCHLORIDE
     Dosage: UNK
  14. LASIX [Concomitant]
     Active Substance: FUROSEMIDE
     Dosage: 20MG

REACTIONS (16)
  - Joint injury [Recovering/Resolving]
  - Chest discomfort [Recovering/Resolving]
  - Cardiac failure congestive [Recovering/Resolving]
  - Hospitalisation [None]
  - Skin discolouration [Recovering/Resolving]
  - Peripheral swelling [Recovering/Resolving]
  - Hypotension [Recovering/Resolving]
  - Feeling abnormal [Recovering/Resolving]
  - Restlessness [Recovering/Resolving]
  - Gait disturbance [Recovering/Resolving]
  - Dyspnoea [Recovering/Resolving]
  - Onychoclasis [Recovering/Resolving]
  - Diarrhoea [Recovering/Resolving]
  - Rash [Recovering/Resolving]
  - Fatigue [Recovering/Resolving]
  - Ejection fraction decreased [Recovering/Resolving]

NARRATIVE: CASE EVENT DATE: 20240301
